FAERS Safety Report 14300771 (Version 1)
Quarter: 2017Q4

REPORT INFORMATION
  Report Type: Other
  Country: US (occurrence: US)
  Receive Date: 20171219
  Receipt Date: 20171219
  Transmission Date: 20180321
  Serious: Yes (Death)
  Sender: FDA-Public Use
  Company Number: US-ACORDA-ACO_144984_2017

PATIENT
  Age: 72 Year
  Sex: Female

DRUGS (1)
  1. AMPYRA [Suspect]
     Active Substance: DALFAMPRIDINE
     Indication: PRODUCT USED FOR UNKNOWN INDICATION
     Dosage: 10 MG, BID (Q12H)
     Route: 048
     Dates: start: 20151115, end: 20171015

REACTIONS (1)
  - Death [Fatal]

NARRATIVE: CASE EVENT DATE: 20171015
